FAERS Safety Report 7276721-2 (Version None)
Quarter: 2011Q1

REPORT INFORMATION
  Report Type: 
  Country: None (occurrence: None)
  Receive Date: 20110204
  Receipt Date: 20110126
  Transmission Date: 20110831
  Serious: Yes (Hospitalization)
  Sender: FDA-Public Use
  Company Number: US-ASTRAZENECA-2011SE04352

PATIENT
  Age: 45 Year
  Sex: Male
  Weight: 93.9 kg

DRUGS (6)
  1. BLOOD PRESSURE MEDICATION [Concomitant]
     Indication: HYPERTENSION
  2. DIABETIC MEDICATION [Concomitant]
     Indication: DIABETES MELLITUS
  3. CRESTOR [Suspect]
     Dosage: SEVERAL TIMES
     Route: 048
  4. PHENOBARBITAL [Concomitant]
     Indication: CONVULSION
  5. CRESTOR [Suspect]
     Indication: HYPERCHOLESTEROLAEMIA
     Route: 048
     Dates: start: 20070101
  6. CRESTOR [Suspect]
     Route: 048
     Dates: start: 20080101, end: 20101101

REACTIONS (6)
  - WEIGHT INCREASED [None]
  - MYALGIA [None]
  - MUSCULAR WEAKNESS [None]
  - DRUG DOSE OMISSION [None]
  - MUSCLE ENZYME INCREASED [None]
  - CHEST PAIN [None]
